FAERS Safety Report 10069300 (Version 3)
Quarter: 2014Q2

REPORT INFORMATION
  Report Type: Spontaneous
  Country: US (occurrence: US)
  Receive Date: 20140409
  Receipt Date: 20140506
  Transmission Date: 20141212
  Serious: Yes (Death, Hospitalization)
  Sender: FDA-Public Use
  Company Number: US-BAXTER-2014BAX017263

PATIENT
  Sex: Female

DRUGS (1)
  1. DIANEAL LOW CALCIUM (ULTRABAG) [Suspect]
     Indication: PERITONEAL DIALYSIS
     Route: 033

REACTIONS (7)
  - Septic shock [Fatal]
  - Post procedural complication [Fatal]
  - Coronary artery disease [Fatal]
  - Hypertension [Fatal]
  - Endocarditis [Fatal]
  - Cardiac disorder [Fatal]
  - Thrombosis [Fatal]
